FAERS Safety Report 5011905-5 (Version None)
Quarter: 2006Q2

REPORT INFORMATION
  Report Type: 
  Country: None (occurrence: None)
  Receive Date: 20060524
  Receipt Date: 20060524
  Transmission Date: 20061013
  Serious: Yes (Hospitalization)
  Sender: FDA-Public Use
  Company Number: None

PATIENT
  Age: 59 Year
  Sex: Male
  Weight: 76.2 kg

DRUGS (1)
  1. IRON DEXTRAN [Suspect]
     Indication: HAEMATOCRIT DECREASED
     Dosage: 25 MG  IV
     Route: 042
     Dates: start: 20060116

REACTIONS (9)
  - ARTHRALGIA [None]
  - CHEST DISCOMFORT [None]
  - DYSPNOEA [None]
  - HYPOTENSION [None]
  - INFUSION RELATED REACTION [None]
  - NAUSEA [None]
  - SINUS TACHYCARDIA [None]
  - TACHYCARDIA [None]
  - VOMITING [None]
